FAERS Safety Report 9466820 (Version 1)
Quarter: 2013Q3

REPORT INFORMATION
  Report Type: Report from Study
  Country: BE (occurrence: BE)
  Receive Date: 20130820
  Receipt Date: 20130820
  Transmission Date: 20140515
  Serious: Yes (Other)
  Sender: FDA-Public Use
  Company Number: BE-BAYER-2013-099750

PATIENT
  Age: 74 Year
  Sex: Female

DRUGS (2)
  1. ASPIRIN [Suspect]
     Indication: HYPERTENSION
     Dosage: UNKNOWN
  2. SOTALOL [Suspect]
     Indication: HYPERTENSION

REACTIONS (2)
  - Atrial fibrillation [None]
  - Off label use [None]
